FAERS Safety Report 5907626-4 (Version None)
Quarter: 2008Q4

REPORT INFORMATION
  Report Type: 
  Country: None (occurrence: None)
  Receive Date: 20081003
  Receipt Date: 20080616
  Transmission Date: 20090506
  Serious: Yes (Hospitalization, Other)
  Sender: FDA-Public Use
  Company Number: US-BAXTER-2008BH006587

PATIENT
  Sex: Female

DRUGS (6)
  1. ATIVAN [Suspect]
     Indication: DRUG USE FOR UNKNOWN INDICATION
  2. ATIVAN [Suspect]
  3. LORAZEPAM [Suspect]
     Indication: DRUG USE FOR UNKNOWN INDICATION
     Route: 048
     Dates: start: 20070301, end: 20071001
  4. LORAZEPAM [Suspect]
     Route: 048
     Dates: start: 20071001, end: 20080501
  5. HALDOL [Concomitant]
     Indication: DRUG USE FOR UNKNOWN INDICATION
     Route: 065
  6. INTERFERON [Concomitant]
     Indication: DRUG USE FOR UNKNOWN INDICATION
     Route: 042

REACTIONS (3)
  - ADVERSE EVENT [None]
  - INCORRECT DRUG ADMINISTRATION DURATION [None]
  - MULTIPLE SCLEROSIS [None]
